FAERS Safety Report 6226510-2 (Version None)
Quarter: 2009Q2

REPORT INFORMATION
  Report Type: 
  Country: None (occurrence: None)
  Receive Date: 20090612
  Receipt Date: 20090525
  Transmission Date: 20091009
  Serious: No
  Sender: FDA-Public Use
  Company Number: US-ABBOTT-09P-163-0574288-00

PATIENT
  Sex: Female

DRUGS (3)
  1. HUMIRA [Suspect]
     Indication: CROHN'S DISEASE
     Route: 058
     Dates: start: 20060517, end: 20090515
  2. ASACOL [Concomitant]
     Indication: DRUG USE FOR UNKNOWN INDICATION
  3. BIRTH CONTROL PILLS [Concomitant]
     Indication: CONTRACEPTION

REACTIONS (3)
  - CHEST DISCOMFORT [None]
  - CROHN'S DISEASE [None]
  - INFLUENZA LIKE ILLNESS [None]
